FAERS Safety Report 11835920 (Version 1)
Quarter: 2015Q4

REPORT INFORMATION
  Report Type: Spontaneous
  Country: CA (occurrence: CA)
  Receive Date: 20151215
  Receipt Date: 20151215
  Transmission Date: 20160305
  Serious: Yes (Other)
  Sender: FDA-Public Use
  Company Number: CA-TEVA-614127ACC

PATIENT
  Age: 54 Year
  Sex: Female
  Weight: 65.83 kg

DRUGS (2)
  1. TEVA-GABAPENTIN 300MG [Suspect]
     Active Substance: GABAPENTIN
     Indication: NEURALGIA
     Route: 048
  2. TYLENOL WITH CODEINE [Concomitant]
     Active Substance: ACETAMINOPHEN\CODEINE PHOSPHATE

REACTIONS (19)
  - Arthralgia [Recovering/Resolving]
  - Oral discomfort [Recovering/Resolving]
  - Pain [Recovering/Resolving]
  - Decreased appetite [Recovering/Resolving]
  - Insomnia [Recovering/Resolving]
  - Abdominal distension [Recovering/Resolving]
  - Chills [Recovering/Resolving]
  - Dry eye [Recovering/Resolving]
  - Dyspepsia [Recovering/Resolving]
  - Pyrexia [Recovering/Resolving]
  - Heart rate increased [Recovering/Resolving]
  - Hyperhidrosis [Recovering/Resolving]
  - Abdominal pain [Recovering/Resolving]
  - Myalgia [Recovering/Resolving]
  - Nausea [Recovering/Resolving]
  - Pollakiuria [Recovering/Resolving]
  - Agitation [Recovering/Resolving]
  - Ear pain [Recovering/Resolving]
  - Vision blurred [Recovering/Resolving]
